FAERS Safety Report 5033674-5 (Version None)
Quarter: 2006Q2

REPORT INFORMATION
  Report Type: 
  Country: None (occurrence: None)
  Receive Date: 20060623
  Receipt Date: 20060522
  Transmission Date: 20061013
  Serious: Yes (Death, Life-Threatening)
  Sender: FDA-Public Use
  Company Number: JP-JPN-A200601654

PATIENT
  Age: 65 Year
  Sex: Female
  Weight: 37 kg

DRUGS (14)
  1. VALTREX [Suspect]
     Indication: HERPES ZOSTER
     Dosage: 1TAB SEE DOSAGE TEXT
     Route: 048
  2. POLARAMINE [Concomitant]
     Dosage: 6MG PER DAY
     Route: 048
     Dates: end: 20060521
  3. SIGMART [Concomitant]
     Dosage: 15MG PER DAY
     Route: 048
     Dates: end: 20060521
  4. DAI-KENCHU-TO [Concomitant]
     Dosage: 7.5G PER DAY
     Route: 048
     Dates: end: 20060521
  5. GLAKAY [Concomitant]
     Dosage: 15MG PER DAY
     Route: 048
     Dates: end: 20060521
  6. CALTAN [Concomitant]
     Dosage: 7.2G PER DAY
     Route: 048
     Dates: end: 20060521
  7. THYRADIN [Concomitant]
     Dosage: 100MG PER DAY
     Route: 048
     Dates: end: 20060521
  8. PANALDINE [Concomitant]
     Dosage: 100MG PER DAY
     Route: 048
     Dates: end: 20060521
  9. VASOLAN [Concomitant]
     Dosage: 40MG PER DAY
     Route: 048
     Dates: end: 20060521
  10. PARIET [Concomitant]
     Dosage: 10MG PER DAY
     Route: 048
     Dates: end: 20060521
  11. ALOSENN [Concomitant]
     Dosage: 1G PER DAY
     Route: 048
     Dates: end: 20060521
  12. NITRODERM [Concomitant]
     Dosage: 25MG PER DAY
     Route: 062
     Dates: end: 20060521
  13. LOXONIN [Concomitant]
     Route: 048
  14. MUCOSTA [Concomitant]
     Route: 048

REACTIONS (9)
  - ABNORMAL BEHAVIOUR [None]
  - CARDIAC ARREST [None]
  - DISSEMINATED INTRAVASCULAR COAGULATION [None]
  - METABOLIC ACIDOSIS [None]
  - OVERDOSE [None]
  - PSYCHIATRIC SYMPTOM [None]
  - RESPIRATORY DISORDER [None]
  - SEPSIS [None]
  - SPEECH DISORDER [None]
